FAERS Safety Report 7791838-1 (Version None)
Quarter: 2011Q4

REPORT INFORMATION
  Report Type: 
  Country: None (occurrence: None)
  Receive Date: 20111003
  Receipt Date: 20110920
  Transmission Date: 20120403
  Serious: Yes (Other)
  Sender: FDA-Public Use
  Company Number: US-BAYER-2010-009099

PATIENT
  Age: 19 Year
  Sex: Female

DRUGS (3)
  1. YASMIN [Suspect]
     Indication: CONTRACEPTION
     Dosage: UNK
     Dates: start: 20030101, end: 20070101
  2. DROSPIRENONE AND ETHINYL ESTRADIOL [Suspect]
     Indication: CONTRACEPTION
     Dosage: UNK
     Dates: start: 20030101, end: 20070101
  3. PHENTERMINE [Concomitant]
     Dosage: UNK
     Dates: start: 20030101, end: 20070101

REACTIONS (4)
  - PAIN [None]
  - CHOLECYSTITIS CHRONIC [None]
  - EMOTIONAL DISTRESS [None]
  - GALLBLADDER DISORDER [None]
